FAERS Safety Report 7310113-2 (Version None)
Quarter: 2011Q1

REPORT INFORMATION
  Report Type: 
  Country: None (occurrence: None)
  Receive Date: 20110224
  Receipt Date: 20110215
  Transmission Date: 20110831
  Serious: No
  Sender: FDA-Public Use
  Company Number: US-PFIZER INC-2010146638

PATIENT
  Sex: Male
  Weight: 84 kg

DRUGS (4)
  1. SYNTHROID [Concomitant]
     Dosage: 1.12 UG, 1X/DAY
  2. PROTONIX [Suspect]
     Indication: GASTROOESOPHAGEAL REFLUX DISEASE
     Dosage: UNK
     Dates: start: 20080101
  3. FLOMAX [Concomitant]
     Dosage: UNK
  4. DIOVAN [Concomitant]
     Dosage: UNIT DOSE: 80;

REACTIONS (3)
  - STEATORRHOEA [None]
  - FAECES DISCOLOURED [None]
  - DYSGEUSIA [None]
